FAERS Safety Report 4476393-6 (Version None)
Quarter: 2004Q4

REPORT INFORMATION
  Report Type: 
  Country: None (occurrence: None)
  Receive Date: 20041016
  Receipt Date: 20041006
  Transmission Date: 20050328
  Serious: Yes (Life-Threatening, Hospitalization, Disabling)
  Sender: FDA-Public Use
  Company Number: US-MERCK-0410USA00961

PATIENT
  Age: 79 Year
  Sex: Male

DRUGS (17)
  1. [THERAPY UNSPECIFIED] [Concomitant]
     Route: 065
     Dates: start: 20040901
  2. [THERAPY UNSPECIFIED] [Concomitant]
     Route: 065
  3. ALBUTEROL [Concomitant]
     Route: 055
  4. ALBUTEROL [Concomitant]
     Route: 065
  5. FOSAMAX [Concomitant]
     Route: 065
  6. CHLORACON [Concomitant]
     Route: 065
     Dates: end: 20040928
  7. CALCIUM (UNSPECIFIED) [Concomitant]
     Route: 065
  8. FLOVENT [Concomitant]
     Route: 065
  9. ADVAIR DISKUS 100/50 [Concomitant]
     Route: 065
  10. FOLIC ACID [Concomitant]
     Route: 065
  11. LASIX [Concomitant]
     Route: 065
     Dates: end: 20040928
  12. IMDUR [Concomitant]
     Route: 065
     Dates: end: 20040928
  13. PREVACID [Concomitant]
     Route: 065
  14. FLOMAX [Concomitant]
     Route: 065
  15. PREDNISONE [Concomitant]
     Route: 065
     Dates: start: 20040901
  16. VIOXX [Suspect]
     Indication: RHEUMATOID ARTHRITIS
     Route: 048
     Dates: start: 20030101, end: 20040930
  17. VITAMINS (UNSPECIFIED) [Concomitant]
     Route: 065

REACTIONS (4)
  - CARDIAC FAILURE CONGESTIVE [None]
  - CHEST PAIN [None]
  - CORONARY ARTERY OCCLUSION [None]
  - VASCULAR CALCIFICATION [None]
